FAERS Safety Report 6896569-8 (Version None)
Quarter: 2010Q3

REPORT INFORMATION
  Report Type: 
  Country: None (occurrence: None)
  Receive Date: 20100802
  Receipt Date: 20090320
  Transmission Date: 20110219
  Serious: No
  Sender: FDA-Public Use
  Company Number: US-PFIZER INC-2009165704

PATIENT
  Sex: Male
  Weight: 65.77 kg

DRUGS (4)
  1. NORVASC [Suspect]
     Indication: HYPERTENSION
     Dosage: 5 MG, 1X/DAY
     Dates: start: 20080101
  2. NAPROXEN [Concomitant]
     Indication: ARTHRITIS
     Dosage: UNK
  3. AVODART [Concomitant]
     Indication: THYROID DISORDER
     Dosage: UNK
  4. INDERAL [Concomitant]
     Dosage: UNK

REACTIONS (3)
  - BLOOD GLUCOSE INCREASED [None]
  - JOINT SWELLING [None]
  - LOW DENSITY LIPOPROTEIN INCREASED [None]
